FAERS Safety Report 19274536 (Version 1)
Quarter: 2021Q2

REPORT INFORMATION
  Report Type: Report from Study
  Country: US (occurrence: US)
  Receive Date: 20210519
  Receipt Date: 20210519
  Transmission Date: 20210717
  Serious: Yes (Hospitalization)
  Sender: FDA-Public Use
  Company Number: US-BAYER-2021-116231

PATIENT
  Age: 75 Year
  Sex: Female
  Weight: 55.78 kg

DRUGS (4)
  1. ADEMPAS [Suspect]
     Active Substance: RIOCIGUAT
     Indication: PULMONARY ARTERIAL HYPERTENSION
     Dosage: 2.0 MG, TID
     Route: 048
  2. ADEMPAS [Suspect]
     Active Substance: RIOCIGUAT
     Indication: PULMONARY ARTERIAL HYPERTENSION
     Dosage: UNK
     Route: 048
     Dates: start: 20210223
  3. UPTRAVI [Concomitant]
     Active Substance: SELEXIPAG
     Dosage: 200MCG BID
  4. ADEMPAS [Suspect]
     Active Substance: RIOCIGUAT
     Indication: PULMONARY ARTERIAL HYPERTENSION
     Dosage: 2.0 MG, TID
     Route: 048

REACTIONS (6)
  - Nausea [None]
  - Enteritis [None]
  - Dyspepsia [None]
  - Diarrhoea [None]
  - Circulatory collapse [None]
  - Loss of consciousness [None]

NARRATIVE: CASE EVENT DATE: 20210327
